FAERS Safety Report 6007762-0 (Version None)
Quarter: 2008Q4

REPORT INFORMATION
  Report Type: 
  Country: None (occurrence: None)
  Receive Date: 20081217
  Receipt Date: 20080530
  Transmission Date: 20090506
  Serious: No
  Sender: FDA-Public Use
  Company Number: US-ASTRAZENECA-2008UW10999

PATIENT
  Age: 68 Year
  Sex: Female

DRUGS (11)
  1. CRESTOR [Suspect]
     Indication: BLOOD CHOLESTEROL INCREASED
     Route: 048
     Dates: start: 20080501
  2. LEVOTHYROXINE SODIUM [Concomitant]
  3. ATACAND [Concomitant]
  4. TOPROL-XL [Concomitant]
  5. NEXIUM [Concomitant]
  6. CELEBREX [Concomitant]
  7. SULFASALAZINE [Concomitant]
  8. METHOTREXATE [Concomitant]
  9. FOLATE [Concomitant]
  10. VITAMIN D [Concomitant]
  11. GLUCOSAMINE/CHONDROITIN [Concomitant]

REACTIONS (1)
  - ALOPECIA [None]
